FAERS Safety Report 21548132 (Version 2)
Quarter: 2022Q4

REPORT INFORMATION
  Report Type: Spontaneous
  Country: JP (occurrence: JP)
  Receive Date: 20221103
  Receipt Date: 20221209
  Transmission Date: 20230113
  Serious: Yes (Other)
  Sender: FDA-Public Use
  Company Number: JP-OTSUKA-2022_049508

PATIENT
  Age: 50 Year
  Sex: Female

DRUGS (3)
  1. SAMSCA [Suspect]
     Active Substance: TOLVAPTAN
     Indication: Congenital cystic kidney disease
     Dosage: 45 MG/DAY, IN THE MORNING
     Route: 048
     Dates: start: 20220614, end: 20221006
  2. SAMSCA [Suspect]
     Active Substance: TOLVAPTAN
     Dosage: 15MG/DAY, IN THE EVENING
     Route: 048
     Dates: start: 20220614, end: 20221006
  3. VONOPRAZAN FUMARATE [Concomitant]
     Active Substance: VONOPRAZAN FUMARATE
     Indication: Gastrooesophageal reflux disease
     Dosage: 20 MG/DAY
     Route: 048
     Dates: start: 20220812

REACTIONS (1)
  - Liver disorder [Recovering/Resolving]

NARRATIVE: CASE EVENT DATE: 20220714
